FAERS Safety Report 7179571-0 (Version None)
Quarter: 2010Q4

REPORT INFORMATION
  Report Type: 
  Country: None (occurrence: None)
  Receive Date: 20101221
  Receipt Date: 20101207
  Transmission Date: 20110411
  Serious: Yes (Other)
  Sender: FDA-Public Use
  Company Number: PHHY2010US83552

PATIENT
  Sex: Female

DRUGS (5)
  1. RECLAST [Suspect]
     Dosage: UNK
  2. MORPHINE [Suspect]
     Indication: ARTHRITIS
  3. MAALOX [Concomitant]
     Indication: MOUTH ULCERATION
  4. LIDOCAINE [Concomitant]
     Indication: MOUTH ULCERATION
  5. BENADRYL [Concomitant]

REACTIONS (15)
  - APHASIA [None]
  - BURNING SENSATION [None]
  - CHILLS [None]
  - GAIT DISTURBANCE [None]
  - INFLUENZA [None]
  - JOINT SWELLING [None]
  - MASTICATION DISORDER [None]
  - MOUTH ULCERATION [None]
  - MYALGIA [None]
  - ORAL HERPES [None]
  - ORAL PAIN [None]
  - PAIN [None]
  - PAINFUL RESPIRATION [None]
  - PRURITUS [None]
  - PYREXIA [None]
